FAERS Safety Report 7905123-8 (Version None)
Quarter: 2011Q4

REPORT INFORMATION
  Report Type: 
  Country: None (occurrence: None)
  Receive Date: 20111109
  Receipt Date: 20111102
  Transmission Date: 20120403
  Serious: Yes (Hospitalization, Other)
  Sender: FDA-Public Use
  Company Number: PHHY2011US79877

PATIENT
  Age: 28 Year
  Sex: Male

DRUGS (7)
  1. CLOZAPINE [Suspect]
     Dosage: 125 MG, DAILY
  2. VALPROATE SODIUM [Concomitant]
  3. PERPHENAZINE [Concomitant]
  4. CLOZAPINE [Suspect]
     Dosage: 12.5 MG, DAILY
  5. LITHIUM [Concomitant]
  6. AMOXICILLIN AND CLAVULANATE POTASSIUM [Concomitant]
     Indication: LOCALISED INFECTION
  7. PREDNISONE [Concomitant]

REACTIONS (16)
  - PYREXIA [None]
  - BLOOD CREATININE INCREASED [None]
  - RESPIRATORY TRACT INFECTION [None]
  - NEUTROPHIL COUNT INCREASED [None]
  - VIRAL INFECTION [None]
  - BLOOD CALCIUM DECREASED [None]
  - EOSINOPHIL COUNT INCREASED [None]
  - RENAL FAILURE ACUTE [None]
  - BLOOD UREA INCREASED [None]
  - PROTEIN TOTAL DECREASED [None]
  - PROTEIN URINE PRESENT [None]
  - URINARY TRACT INFECTION [None]
  - HEADACHE [None]
  - FUNGAL INFECTION [None]
  - TUBULOINTERSTITIAL NEPHRITIS [None]
  - WHITE BLOOD CELL COUNT INCREASED [None]
